FAERS Safety Report 4716781-3 (Version None)
Quarter: 2005Q3

REPORT INFORMATION
  Report Type: 
  Country: None (occurrence: None)
  Receive Date: 20050714
  Receipt Date: 20050705
  Transmission Date: 20060218
  Serious: Yes (Death)
  Sender: FDA-Public Use
  Company Number: 032-15

PATIENT
  Age: 64 Year
  Sex: Male

DRUGS (7)
  1. TEVETEN [Suspect]
     Indication: HYPERTENSION
     Dosage: 600 MG UNK; PO
     Route: 048
     Dates: start: 20050214, end: 20050513
  2. TEVETEN [Suspect]
     Indication: THROMBOSIS PROPHYLAXIS
     Dosage: 600 MG UNK; PO
     Route: 048
     Dates: start: 20050214, end: 20050513
  3. LEVOXINE [Concomitant]
  4. ACENOCOUMAROL [Concomitant]
  5. OMEPRAZOLE [Concomitant]
  6. BLOOD PRESSURE MEDICATION [Concomitant]
  7. HYDROCHLOROTHIAZIDE [Concomitant]

REACTIONS (2)
  - CARDIOVERSION [None]
  - SUDDEN DEATH [None]
